FAERS Safety Report 4984978-3 (Version None)
Quarter: 2006Q2

REPORT INFORMATION
  Report Type: 
  Country: None (occurrence: None)
  Receive Date: 20060426
  Receipt Date: 20060426
  Transmission Date: 20061013
  Serious: Yes (Hospitalization)
  Sender: FDA-Public Use
  Company Number: None

PATIENT
  Age: 89 Year
  Sex: Female
  Weight: 42 kg

DRUGS (7)
  1. TEQUIN [Suspect]
     Dosage: 400MG  STAT + DAILY  IVPB
     Route: 042
     Dates: start: 20060409, end: 20060410
  2. TEQUIN [Suspect]
     Dosage: 200MG  DAILY  IVPB
     Route: 042
     Dates: start: 20060411
  3. NEXIUM [Concomitant]
  4. MONOPRIL [Concomitant]
  5. LISPRO INSULIN [Concomitant]
  6. DIGOXIN [Concomitant]
  7. LOPRESSOR [Concomitant]

REACTIONS (1)
  - BLOOD GLUCOSE INCREASED [None]
